FAERS Safety Report 6666849-X (Version None)
Quarter: 2010Q1

REPORT INFORMATION
  Report Type: 
  Country: None (occurrence: None)
  Receive Date: 20100331
  Receipt Date: 20100319
  Transmission Date: 20100710
  Serious: Yes (Other)
  Sender: FDA-Public Use
  Company Number: 1000012760

PATIENT
  Age: 75 Year
  Sex: Female

DRUGS (1)
  1. CITALOPRAM HYDROBROMIDE [Suspect]
     Indication: DEPRESSION
     Dosage: 30 MG (20 MG, 1 IN 1 D), ORAL
     Route: 048
     Dates: start: 20041213, end: 20090306

REACTIONS (1)
  - TARDIVE DYSKINESIA [None]
